FAERS Safety Report 5126683-9 (Version None)
Quarter: 2006Q4

REPORT INFORMATION
  Report Type: 
  Country: None (occurrence: None)
  Receive Date: 20061012
  Receipt Date: 20061012
  Transmission Date: 20070319
  Serious: Yes (Other)
  Sender: FDA-Public Use
  Company Number: None

PATIENT
  Age: 49 Year
  Sex: Female
  Weight: 70 kg

DRUGS (1)
  1. LAMICTAL [Suspect]
     Indication: CONVULSION
     Dosage: ORAL - DOSE UNKNOWN  (DURATION: SEVERAL YEARS)
     Route: 048

REACTIONS (5)
  - PALMAR ERYTHEMA [None]
  - RASH ERYTHEMATOUS [None]
  - RASH PRURITIC [None]
  - SOFT TISSUE DISORDER [None]
  - SWELLING [None]
